FAERS Safety Report 17033800 (Version 1)
Quarter: 2019Q4

REPORT INFORMATION
  Report Type: Spontaneous
  Country: None (occurrence: CA)
  Receive Date: 20191114
  Receipt Date: 20191114
  Transmission Date: 20200122
  Serious: Yes (Other)
  Sender: FDA-Public Use
  Company Number: CA-ALK ABELLO INC-2076872

PATIENT
  Age: 36 Year
  Sex: Male

DRUGS (7)
  1. CAT PELT, STANDARDIZED [Suspect]
     Active Substance: FELIS CATUS SKIN
     Route: 058
     Dates: start: 20190411, end: 20191028
  2. MIXED RAGWEED [Suspect]
     Active Substance: AMBROSIA ARTEMISIIFOLIA POLLEN\AMBROSIA TRIFIDA POLLEN
     Route: 058
     Dates: start: 20190411, end: 20191028
  3. EPINEPHRINE. [Concomitant]
     Active Substance: EPINEPHRINE
  4. STERILE DILUENT (WATER) [Suspect]
     Active Substance: WATER
     Route: 058
     Dates: start: 20190411, end: 20191028
  5. 5 GRASS MIX (AGROSTIS GIGANTEA POLLEN\ANTHOXANTHUM ODORATUM POLLEN\DACTYLIS GLOMERATA POLLEN\PHLEUM PRATENSE POLLEN\POA PRATENSIS POLLEN) [Suspect]
     Active Substance: AGROSTIS GIGANTEA POLLEN\ANTHOXANTHUM ODORATUM POLLEN\DACTYLIS GLOMERATA POLLEN\PHLEUM PRATENSE POLLEN\POA PRATENSIS POLLEN
     Route: 058
     Dates: start: 20190411, end: 20191028
  6. BENADRYL [Concomitant]
     Active Substance: DIPHENHYDRAMINE HYDROCHLORIDE
     Route: 042
  7. STANDARDIZED TIMOTHY GRASS [Suspect]
     Active Substance: PHLEUM PRATENSE POLLEN
     Route: 058
     Dates: start: 20190411, end: 20191028

REACTIONS (6)
  - Injection site swelling [Recovered/Resolved]
  - Swelling face [Recovered/Resolved]
  - Dyspnoea [Recovered/Resolved]
  - Product colour issue [Unknown]
  - Erythema [Recovered/Resolved]
  - Pruritus [Recovered/Resolved]

NARRATIVE: CASE EVENT DATE: 20191028
